FAERS Safety Report 24032084 (Version 1)
Quarter: 2024Q2

REPORT INFORMATION
  Report Type: Spontaneous
  Country: US (occurrence: US)
  Receive Date: 20240630
  Receipt Date: 20240630
  Transmission Date: 20240716
  Serious: Yes (Death, Hospitalization, Other)
  Sender: FDA-Public Use
  Company Number: US-DRL-USA-LIT/USA/24/0009229

PATIENT
  Age: 50 Year
  Sex: Male

DRUGS (3)
  1. HEPARIN [Suspect]
     Active Substance: HEPARIN SODIUM
     Indication: Coronary artery thrombosis
  2. FONDAPARINUX [Suspect]
     Active Substance: FONDAPARINUX
     Indication: Coronary artery thrombosis
  3. HUMAN IMMUNOGLOBULIN G [Concomitant]
     Active Substance: HUMAN IMMUNOGLOBULIN G
     Indication: Coronary artery thrombosis
     Route: 042

REACTIONS (3)
  - Drug ineffective [Fatal]
  - Haematochezia [Unknown]
  - Heparin-induced thrombocytopenia [Unknown]
